FAERS Safety Report 4882015-2 (Version None)
Quarter: 2006Q1

REPORT INFORMATION
  Report Type: 
  Country: None (occurrence: None)
  Receive Date: 20060117
  Receipt Date: 20060106
  Transmission Date: 20060701
  Serious: Yes (Other)
  Sender: FDA-Public Use
  Company Number: US-AVENTIS-200610233US

PATIENT
  Sex: Female

DRUGS (8)
  1. LOVENOX [Suspect]
     Indication: THROMBOSIS
     Route: 058
     Dates: start: 20051101
  2. INNOHEP [Suspect]
     Indication: THROMBOSIS
     Dosage: DOSE: UNK
  3. ALL OTHER THERAPEUTIC PRODUCTS [Suspect]
     Indication: OVARIAN CANCER
     Dosage: DOSE: UNK
     Dates: start: 20051101
  4. LUNESTA [Concomitant]
     Dosage: DOSE: UNK
  5. SENOKOT [Concomitant]
     Dosage: DOSE: UNK
  6. LEVAQUIN [Concomitant]
     Dosage: DOSE: UNK
  7. DARVOCET-N 50 [Concomitant]
     Dosage: DOSE: UNK
  8. CARBOPLATIN [Concomitant]
     Indication: OVARIAN CANCER
     Route: 042
     Dates: start: 20051101

REACTIONS (7)
  - HEAD INJURY [None]
  - HEADACHE [None]
  - INJECTION SITE RASH [None]
  - RASH [None]
  - SKIN DISCOLOURATION [None]
  - SYNCOPE [None]
  - TREATMENT NONCOMPLIANCE [None]
